FAERS Safety Report 9471875 (Version 1)
Quarter: 2013Q3

REPORT INFORMATION
  Report Type: Spontaneous
  Country: CH (occurrence: CH)
  Receive Date: 20130823
  Receipt Date: 20130823
  Transmission Date: 20140515
  Serious: Yes (Other)
  Sender: FDA-Public Use
  Company Number: CH-ROCHE-1264822

PATIENT
  Age: 86 Year
  Sex: Female

DRUGS (7)
  1. LUCENTIS [Suspect]
     Indication: MACULAR DEGENERATION
     Dosage: 0.5 MG; LOADING PHASE OF 3 INJECTIONS
     Route: 050
  2. LUCENTIS [Suspect]
     Route: 050
  3. BEVACIZUMAB [Concomitant]
     Route: 065
  4. FLUORESCEIN [Concomitant]
  5. TETRACAINE [Concomitant]
  6. TRIAMCINOLONE [Concomitant]
  7. POVIDONE-IODINE [Concomitant]

REACTIONS (4)
  - Pseudoendophthalmitis [Recovered/Resolved]
  - Tachyphylaxis [Unknown]
  - Retinal oedema [Unknown]
  - Corneal lesion [Unknown]
